FAERS Safety Report 25548276 (Version 2)
Quarter: 2025Q3

REPORT INFORMATION
  Report Type: Spontaneous
  Country: IL (occurrence: IL)
  Receive Date: 20250714
  Receipt Date: 20250721
  Transmission Date: 20251020
  Serious: Yes (Hospitalization, Other)
  Sender: ASTELLAS
  Company Number: IL-ASTELLAS-2025-AER-037044

PATIENT
  Age: 75 Year
  Sex: Female

DRUGS (7)
  1. XOSPATA [Suspect]
     Active Substance: GILTERITINIB
     Indication: Acute myeloid leukaemia
     Dosage: 2 TABLETS AT A TIME, ONCE DAILY?6 DAYS
     Route: 065
  2. XOSPATA [Suspect]
     Active Substance: GILTERITINIB
     Dosage: 6 DAYS OF 80 MG/DAY
     Route: 065
  3. CINNARIZINE [Suspect]
     Active Substance: CINNARIZINE
     Indication: Prophylaxis of nausea and vomiting
     Route: 065
  4. VENETOCLAX [Concomitant]
     Active Substance: VENETOCLAX
     Indication: Acute myeloid leukaemia
     Route: 065
  5. VENETOCLAX [Concomitant]
     Active Substance: VENETOCLAX
     Route: 065
  6. VIDAZA [Concomitant]
     Active Substance: AZACITIDINE
     Indication: Acute myeloid leukaemia
     Route: 065
  7. VIDAZA [Concomitant]
     Active Substance: AZACITIDINE
     Route: 065

REACTIONS (6)
  - Full blood count decreased [Unknown]
  - Large intestine perforation [Recovered/Resolved]
  - Bone marrow failure [Unknown]
  - Pyrexia [Unknown]
  - Product use issue [Unknown]
  - Off label use [Unknown]
